FAERS Safety Report 9748727 (Version 3)
Quarter: 2014Q1

REPORT INFORMATION
  Report Type: Spontaneous
  Country: FR (occurrence: None)
  Receive Date: 20131209
  Receipt Date: 20140129
  Transmission Date: 20141002
  Serious: Yes (Hospitalization)
  Sender: FDA-Public Use
  Company Number: FR-MDCO-13-00060

PATIENT
  Age: 75 Year
  Sex: Female

DRUGS (3)
  1. ANGIOX (BIVALIRUDIN) (UNKNOWN) (BIVALIRUDIN) [Suspect]
     Indication: ANGIOPLASTY
     Dosage: AT 1 PM
     Route: 040
     Dates: start: 20131120, end: 201311
  2. ASPIRINE (ACETYLSALICYLIC ACID) (ACETYLSALICYLIC ACID) [Concomitant]
  3. TICAGRELOR (TICAGRELOR) (TICAGRELOR) [Concomitant]

REACTIONS (2)
  - Thrombosis in device [None]
  - Thrombosis in device [None]
